FAERS Safety Report 21969621 (Version 5)
Quarter: 2024Q1

REPORT INFORMATION
  Report Type: Report from Study
  Country: AR (occurrence: AR)
  Receive Date: 20230208
  Receipt Date: 20240223
  Transmission Date: 20240410
  Serious: Yes (Other)
  Sender: FDA-Public Use
  Company Number: AR-009507513-2302ARG002094

PATIENT
  Age: 46 Year
  Sex: Female

DRUGS (4)
  1. PEMBROLIZUMAB [Suspect]
     Active Substance: PEMBROLIZUMAB
     Indication: Renal cell carcinoma
     Dosage: 200 MILLIGRAM, Q3W
     Route: 042
     Dates: start: 20221222, end: 20230531
  2. PEMBROLIZUMAB [Suspect]
     Active Substance: PEMBROLIZUMAB
     Dosage: 200 MILLIGRAM, Q3W
     Route: 042
     Dates: start: 20230718, end: 20230718
  3. PEMBROLIZUMAB [Suspect]
     Active Substance: PEMBROLIZUMAB
     Dosage: 200 MILLIGRAM, Q3W
     Route: 042
     Dates: start: 20230920
  4. AXITINIB [Suspect]
     Active Substance: AXITINIB
     Indication: Renal cell carcinoma

REACTIONS (13)
  - Nephrectomy [Recovering/Resolving]
  - Anaemia [Recovering/Resolving]
  - Impaired healing [Recovering/Resolving]
  - Post procedural discomfort [Recovering/Resolving]
  - Oropharyngeal plaque [Recovering/Resolving]
  - Pyrexia [Recovering/Resolving]
  - Illness [Recovered/Resolved]
  - Lung disorder [Unknown]
  - Gastrointestinal disorder [Recovered/Resolved]
  - Influenza [Recovering/Resolving]
  - Anaemia [Unknown]
  - Blood pressure abnormal [Unknown]
  - Temperature intolerance [Unknown]

NARRATIVE: CASE EVENT DATE: 20221201
